FAERS Safety Report 5086986-3 (Version None)
Quarter: 2006Q3

REPORT INFORMATION
  Report Type: 
  Country: None (occurrence: None)
  Receive Date: 20060818
  Receipt Date: 20060731
  Transmission Date: 20061208
  Serious: Yes (Hospitalization)
  Sender: FDA-Public Use
  Company Number: US200608000468

PATIENT
  Age: 46 Year
  Sex: Female
  Weight: 72.6 kg

DRUGS (1)
  1. ZYPREXA [Suspect]
     Indication: DEPRESSION
     Dosage: 20 MG
     Dates: start: 20040101

REACTIONS (3)
  - CARDIAC OPERATION [None]
  - DIABETES MELLITUS [None]
  - INSULIN RESISTANCE [None]
